FAERS Safety Report 19672816 (Version 2)
Quarter: 2021Q4

REPORT INFORMATION
  Report Type: Spontaneous
  Country: US (occurrence: US)
  Receive Date: 20210809
  Receipt Date: 20211105
  Transmission Date: 20220304
  Serious: Yes (Death, Hospitalization)
  Sender: FDA-Public Use
  Company Number: US-NOVARTISPH-NVSC2021US177766

PATIENT
  Age: 62 Year
  Sex: Female
  Weight: 62.4 kg

DRUGS (1)
  1. LUTATHERA [Suspect]
     Active Substance: LUTETIUM OXODOTREOTIDE LU-177
     Indication: Product used for unknown indication
     Dosage: UNK
     Route: 042

REACTIONS (4)
  - Neuroendocrine tumour [Fatal]
  - Chronic hepatic failure [Unknown]
  - Generalised oedema [Unknown]
  - Failure to thrive [Unknown]

NARRATIVE: CASE EVENT DATE: 20210731
